FAERS Safety Report 6124115-5 (Version None)
Quarter: 2009Q1

REPORT INFORMATION
  Report Type: 
  Country: None (occurrence: None)
  Receive Date: 20090319
  Receipt Date: 20090310
  Transmission Date: 20090719
  Serious: Yes (Hospitalization)
  Sender: FDA-Public Use
  Company Number: GB-ROCHE-621266

PATIENT
  Sex: Female
  Weight: 95.3 kg

DRUGS (10)
  1. ORLISTAT [Suspect]
     Indication: OBESITY
     Route: 048
     Dates: start: 20090223, end: 20090301
  2. SIMVASTATIN [Concomitant]
     Route: 048
  3. ATENOLOL [Concomitant]
     Route: 048
  4. FRUSEMIDE [Concomitant]
     Indication: FLUID RETENTION
     Route: 048
  5. RAMIPRIL [Concomitant]
     Indication: BLOOD PRESSURE
     Route: 048
  6. DOXAZOSIN MESYLATE [Concomitant]
     Indication: BLOOD PRESSURE
     Route: 048
  7. ASPIRIN [Concomitant]
     Indication: UNEVALUABLE EVENT
     Route: 048
  8. METFORMIN HCL [Concomitant]
     Route: 048
  9. HUMALOG [Concomitant]
     Dosage: 24 UNITS MORNING AND 24 UNITS EVENING, ROUTE: INJECTION.
     Route: 050
  10. VITAMIN B-12 [Concomitant]
     Indication: ANAEMIA
     Dosage: FRQUENCY: ONCE MONTHLY, ROUTE: INJECTION.
     Route: 050

REACTIONS (2)
  - BACK PAIN [None]
  - HYPERHIDROSIS [None]
